FAERS Safety Report 6400236-4 (Version None)
Quarter: 2009Q4

REPORT INFORMATION
  Report Type: 
  Country: None (occurrence: None)
  Receive Date: 20091014
  Receipt Date: 20091005
  Transmission Date: 20100525
  Serious: Yes (Other)
  Sender: FDA-Public Use
  Company Number: CA-NOVOPROD-292469

PATIENT
  Sex: Male

DRUGS (2)
  1. NIASTASE [Suspect]
     Indication: GASTROINTESTINAL HAEMORRHAGE
  2. FEIBA                              /01034301/ [Concomitant]

REACTIONS (1)
  - SPLENIC INFARCTION [None]
